FAERS Safety Report 5728378-7 (Version None)
Quarter: 2008Q2

REPORT INFORMATION
  Report Type: 
  Country: None (occurrence: None)
  Receive Date: 20080502
  Receipt Date: 20080502
  Transmission Date: 20081010
  Serious: Yes (Life-Threatening, Hospitalization)
  Sender: FDA-Public Use
  Company Number: None

PATIENT
  Age: 53 Year
  Sex: Female
  Weight: 86.1834 kg

DRUGS (2)
  1. LYRICA [Suspect]
     Indication: FIBROMYALGIA
     Dosage: 6 CAPS 2 TIMES / DAY PO
     Route: 048
     Dates: start: 20080308, end: 20080312
  2. LYRICA [Suspect]
     Indication: NEUROPATHY PERIPHERAL
     Dosage: 6 CAPS 2 TIMES / DAY PO
     Route: 048
     Dates: start: 20080308, end: 20080312

REACTIONS (4)
  - ANAPHYLACTIC REACTION [None]
  - BLISTER [None]
  - DYSPNOEA [None]
  - TONGUE BLISTERING [None]
